FAERS Safety Report 26219406 (Version 1)
Quarter: 2025Q4

REPORT INFORMATION
  Report Type: Report from Study
  Country: CA (occurrence: CA)
  Receive Date: 20251231
  Receipt Date: 20251231
  Transmission Date: 20260117
  Serious: Yes (Hospitalization)
  Sender: ABBVIE
  Company Number: CA-ABBVIE-6610148

PATIENT
  Age: 45 Year
  Sex: Female

DRUGS (1)
  1. RINVOQ [Suspect]
     Active Substance: UPADACITINIB
     Indication: Product used for unknown indication
     Route: 048
     Dates: start: 20251205, end: 20251212

REACTIONS (5)
  - Chest pain [Unknown]
  - Asthenia [Unknown]
  - Immunodeficiency [Unknown]
  - Swelling face [Unknown]
  - Pruritus [Unknown]

NARRATIVE: CASE EVENT DATE: 20251201
